FAERS Safety Report 20601988 (Version 1)
Quarter: 2022Q1

REPORT INFORMATION
  Report Type: Report from Study
  Country: US (occurrence: US)
  Receive Date: 20220316
  Receipt Date: 20220316
  Transmission Date: 20220424
  Serious: Yes (Other)
  Sender: FDA-Public Use
  Company Number: US-JNJFOC-20220325685

PATIENT

DRUGS (1)
  1. INVEGA [Suspect]
     Active Substance: PALIPERIDONE
     Indication: Bipolar I disorder
     Route: 048
     Dates: start: 20200801, end: 20201101

REACTIONS (3)
  - Suicidal ideation [Unknown]
  - Crying [Unknown]
  - Blood glucose increased [Unknown]
